FAERS Safety Report 22883695 (Version 10)
Quarter: 2023Q4

REPORT INFORMATION
  Report Type: Report from Study
  Country: SE (occurrence: SE)
  Receive Date: 20230830
  Receipt Date: 20231120
  Transmission Date: 20240109
  Serious: Yes (Other)
  Sender: FDA-Public Use
  Company Number: SE-JNJFOC-20230365908

PATIENT
  Age: 51 Year
  Sex: Female

DRUGS (42)
  1. SPRAVATO [Suspect]
     Active Substance: ESKETAMINE
     Indication: Depression
     Dates: start: 20230315, end: 20230315
  2. SPRAVATO [Suspect]
     Active Substance: ESKETAMINE
     Dosage: DOSES RECEIVED ON 17-MAR-2023 AND 21-MAR-2023
     Dates: start: 20230317, end: 20230321
  3. SPRAVATO [Suspect]
     Active Substance: ESKETAMINE
     Dates: start: 20230323, end: 20230323
  4. SPRAVATO [Suspect]
     Active Substance: ESKETAMINE
     Dates: start: 20230328, end: 20230328
  5. SPRAVATO [Suspect]
     Active Substance: ESKETAMINE
     Dates: start: 20230331, end: 20230331
  6. SPRAVATO [Suspect]
     Active Substance: ESKETAMINE
     Dates: start: 20230404, end: 20230404
  7. SPRAVATO [Suspect]
     Active Substance: ESKETAMINE
     Dates: start: 20230406, end: 20230406
  8. SPRAVATO [Suspect]
     Active Substance: ESKETAMINE
     Dosage: DOSES RECEIVED ON 13-APR-2023
     Dates: start: 20230411, end: 20230413
  9. SPRAVATO [Suspect]
     Active Substance: ESKETAMINE
     Dates: start: 20230418, end: 20230418
  10. SPRAVATO [Suspect]
     Active Substance: ESKETAMINE
     Dates: start: 20230421, end: 20230421
  11. SPRAVATO [Suspect]
     Active Substance: ESKETAMINE
     Dates: start: 20230428, end: 20230428
  12. SPRAVATO [Suspect]
     Active Substance: ESKETAMINE
     Dates: start: 20230505, end: 20230505
  13. SPRAVATO [Suspect]
     Active Substance: ESKETAMINE
     Dates: start: 20230512, end: 20230512
  14. SPRAVATO [Suspect]
     Active Substance: ESKETAMINE
     Dates: start: 20230516, end: 20230516
  15. SPRAVATO [Suspect]
     Active Substance: ESKETAMINE
     Dates: start: 20230523, end: 20230523
  16. SPRAVATO [Suspect]
     Active Substance: ESKETAMINE
     Dates: start: 20230529, end: 20230529
  17. SPRAVATO [Suspect]
     Active Substance: ESKETAMINE
     Dates: start: 20230605, end: 20230605
  18. SPRAVATO [Suspect]
     Active Substance: ESKETAMINE
     Dates: start: 20230612, end: 20230612
  19. SPRAVATO [Suspect]
     Active Substance: ESKETAMINE
     Dosage: 84 MG(3 DEVICES)
     Dates: start: 20230620, end: 20230620
  20. SPRAVATO [Suspect]
     Active Substance: ESKETAMINE
     Dates: start: 20230627, end: 20230627
  21. SPRAVATO [Suspect]
     Active Substance: ESKETAMINE
     Dates: start: 20230704, end: 20230704
  22. SPRAVATO [Suspect]
     Active Substance: ESKETAMINE
     Dates: start: 20230712, end: 20230712
  23. SPRAVATO [Suspect]
     Active Substance: ESKETAMINE
     Dates: start: 20230714, end: 20230714
  24. SPRAVATO [Suspect]
     Active Substance: ESKETAMINE
     Dates: start: 20230717, end: 20230717
  25. SPRAVATO [Suspect]
     Active Substance: ESKETAMINE
     Dates: start: 20230719, end: 20230719
  26. SPRAVATO [Suspect]
     Active Substance: ESKETAMINE
     Dates: start: 20230726, end: 20230726
  27. SPRAVATO [Suspect]
     Active Substance: ESKETAMINE
     Dates: start: 20230728, end: 20230728
  28. SPRAVATO [Suspect]
     Active Substance: ESKETAMINE
     Dates: start: 20230731, end: 20230731
  29. SPRAVATO [Suspect]
     Active Substance: ESKETAMINE
     Dates: start: 20230802, end: 20230802
  30. SPRAVATO [Suspect]
     Active Substance: ESKETAMINE
     Dates: start: 20230807, end: 20230807
  31. SPRAVATO [Suspect]
     Active Substance: ESKETAMINE
     Dates: start: 20230810, end: 20230810
  32. SPRAVATO [Suspect]
     Active Substance: ESKETAMINE
     Dates: start: 20230816, end: 20230816
  33. SPRAVATO [Suspect]
     Active Substance: ESKETAMINE
     Dates: start: 20230822, end: 20230822
  34. SPRAVATO [Suspect]
     Active Substance: ESKETAMINE
     Dosage: 84 MG (3 DEVICES)
     Dates: start: 20230828, end: 20230828
  35. SPRAVATO [Suspect]
     Active Substance: ESKETAMINE
     Dosage: 84 MG (3 DEVICES)
     Dates: start: 20230831, end: 20230831
  36. SPRAVATO [Suspect]
     Active Substance: ESKETAMINE
     Dosage: 84 MG (3 DEVICES)
     Dates: start: 20230905, end: 20230905
  37. SPRAVATO [Suspect]
     Active Substance: ESKETAMINE
     Dosage: 84 MG (3 DEVICES)
     Dates: start: 20230912, end: 20230912
  38. SPRAVATO [Suspect]
     Active Substance: ESKETAMINE
     Dosage: 84 MG (3 DEVICES)
     Dates: start: 20230918, end: 20230918
  39. SPRAVATO [Suspect]
     Active Substance: ESKETAMINE
     Dosage: 84 MG (3 DEVICES)
     Dates: start: 20230925, end: 20230925
  40. SPRAVATO [Suspect]
     Active Substance: ESKETAMINE
     Dosage: 84 MG (3 DEVICES)
     Dates: start: 20231002, end: 20231002
  41. SPRAVATO [Suspect]
     Active Substance: ESKETAMINE
     Dosage: 84 MG (3 DEVICES)
     Dates: start: 20231009, end: 20231009
  42. SPRAVATO [Suspect]
     Active Substance: ESKETAMINE
     Dosage: 84 MG (3 DEVICES)
     Dates: start: 20231016, end: 20231016

REACTIONS (7)
  - Clostridium difficile infection [Recovered/Resolved]
  - Dissociation [Recovered/Resolved]
  - Nausea [Recovered/Resolved]
  - Vomiting [Recovered/Resolved]
  - Hypertension [Recovered/Resolved]
  - Animal bite [Recovered/Resolved]
  - Dizziness [Recovered/Resolved]

NARRATIVE: CASE EVENT DATE: 20230315
